FAERS Safety Report 15152472 (Version 1)
Quarter: 2018Q3

REPORT INFORMATION
  Report Type: Spontaneous
  Country: US (occurrence: US)
  Receive Date: 20180717
  Receipt Date: 20180717
  Transmission Date: 20181010
  Serious: No
  Sender: FDA-Public Use
  Company Number: PHEH2018US028521

PATIENT
  Sex: Female

DRUGS (3)
  1. RIVASTIGMINE. [Suspect]
     Active Substance: RIVASTIGMINE
     Indication: PRODUCT USED FOR UNKNOWN INDICATION
     Dosage: 4.5 MG, QD (4.6 MG, QD PATCH 5 (CM2)
     Route: 062
  2. RIVASTIGMINE. [Suspect]
     Active Substance: RIVASTIGMINE
     Dosage: 4.6 MG, QD ( (4.6 MG, QD PATCH 5 (CM2))
     Route: 062
  3. RIVASTIGMINE. [Suspect]
     Active Substance: RIVASTIGMINE
     Dosage: UNK
     Route: 062

REACTIONS (3)
  - Product packaging issue [Unknown]
  - Rash [Unknown]
  - Drug ineffective [Unknown]
